FAERS Safety Report 8763124 (Version 1)
Quarter: 2012Q4

REPORT INFORMATION
  Report Type: 
  Country: GB (occurrence: GB)
  Receive Date: 20120831
  Receipt Date: 20120831
  Transmission Date: 20130627
  Serious: Yes (Hospitalization)
  Sender: FDA-Public Use
  Company Number: GB-MYLANLABS-2012S1017216

PATIENT
  Age: 2 Year
  Sex: Male

DRUGS (8)
  1. CISPLATIN [Suspect]
     Indication: NEUROBLASTOMA
     Route: 065
  2. CARBOPLATIN [Suspect]
     Indication: NEUROBLASTOMA
     Route: 065
  3. VINCRISTINE [Concomitant]
     Indication: NEUROBLASTOMA
     Route: 065
  4. CYCLOPHOSPHAMIDE [Concomitant]
     Indication: NEUROBLASTOMA
     Route: 065
  5. ETOPOSIDE [Concomitant]
     Indication: NEUROBLASTOMA
     Route: 065
  6. HYDROCORTISONE [Concomitant]
     Indication: ADRENOGENITAL SYNDROME
     Dosage: ^daily supplements^
     Route: 065
  7. HYDROCORTISONE [Concomitant]
     Indication: ADRENOGENITAL SYNDROME
     Dosage: ^daily supplements^; stress dose (double dose)
     Route: 065
  8. FLUDROCORTISONE [Concomitant]
     Indication: ADRENOGENITAL SYNDROME
     Dosage: ^daily supplements^
     Route: 065

REACTIONS (2)
  - Renal tubular disorder [Unknown]
  - Electrolyte imbalance [Recovering/Resolving]
